FAERS Safety Report 23888605 (Version 1)
Quarter: 2024Q2

REPORT INFORMATION
  Report Type: Spontaneous
  Country: FR (occurrence: FR)
  Receive Date: 20240523
  Receipt Date: 20240523
  Transmission Date: 20240715
  Serious: Yes (Other)
  Sender: FDA-Public Use
  Company Number: None

PATIENT
  Age: 54 Year
  Sex: Male
  Weight: 90 kg

DRUGS (3)
  1. AMOXICILLIN [Interacting]
     Active Substance: AMOXICILLIN
     Indication: Upper respiratory tract infection
     Dosage: 2 DOSAGE FORM, QD (2 G PER DAY)
     Route: 065
     Dates: start: 20240418, end: 20240421
  2. LOPERAMIDE [Interacting]
     Active Substance: LOPERAMIDE
     Indication: Diarrhoea
     Dosage: 5 DOSAGE FORM (2 TABLETS ON 04/21, 3 TABLETS ON 04/22)
     Route: 048
     Dates: start: 20240421, end: 20240422
  3. RACECADOTRIL [Concomitant]
     Active Substance: RACECADOTRIL
     Indication: Diarrhoea
     Dosage: 1 DOSAGE FORM
     Route: 048

REACTIONS (2)
  - Clostridium difficile colitis [Recovering/Resolving]
  - Drug interaction [Unknown]

NARRATIVE: CASE EVENT DATE: 20240421
